FAERS Safety Report 8018495-3 (Version None)
Quarter: 2012Q1

REPORT INFORMATION
  Report Type: 
  Country: None (occurrence: None)
  Receive Date: 20120103
  Receipt Date: 20111229
  Transmission Date: 20120608
  Serious: Yes (Death)
  Sender: FDA-Public Use
  Company Number: DE-ASTELLAS-2011US008672

PATIENT
  Sex: Male

DRUGS (1)
  1. TARCEVA [Suspect]
     Indication: NON-SMALL CELL LUNG CANCER
     Dosage: 150 MG, UNKNOWN/D
     Route: 048

REACTIONS (8)
  - PRURITUS [None]
  - NEOPLASM MALIGNANT [None]
  - SKIN REACTION [None]
  - DEPRESSION [None]
  - DEATH [None]
  - DIARRHOEA [None]
  - BRONCHITIS [None]
  - WEIGHT DECREASED [None]
